FAERS Safety Report 18579857 (Version 1)
Quarter: 2020Q4

REPORT INFORMATION
  Report Type: Spontaneous
  Country: US (occurrence: US)
  Receive Date: 20201204
  Receipt Date: 20201204
  Transmission Date: 20210114
  Serious: Yes (Hospitalization, Other)
  Sender: FDA-Public Use
  Company Number: US-ALVOGEN-2020-ALVOGEN-115414

PATIENT
  Age: 23 Year
  Sex: Male

DRUGS (12)
  1. MIRTAZAPINE. [Concomitant]
     Active Substance: MIRTAZAPINE
     Indication: DEPRESSION
     Dosage: AT NIGHT
  2. TESTOSTERONE. [Concomitant]
     Active Substance: TESTOSTERONE
     Indication: GENDER REASSIGNMENT THERAPY
  3. LORAZEPAM. [Concomitant]
     Active Substance: LORAZEPAM
     Indication: ANXIETY
  4. LURASIDONE [Concomitant]
     Active Substance: LURASIDONE
     Indication: FLASHBACK
  5. VERAPAMIL [Concomitant]
     Active Substance: VERAPAMIL HYDROCHLORIDE
     Indication: TACHYCARDIA
     Dosage: AT NIGHT
  6. FAMOTIDINE. [Concomitant]
     Active Substance: FAMOTIDINE
     Indication: GASTROOESOPHAGEAL REFLUX DISEASE
  7. FLUDROCORTISONE [Concomitant]
     Active Substance: FLUDROCORTISONE
     Indication: HYPOTENSION
  8. GABAPENTIN. [Suspect]
     Active Substance: GABAPENTIN
     Indication: ANXIETY
  9. FLUVOXAMINE [Concomitant]
     Active Substance: FLUVOXAMINE
     Indication: OBSESSIVE THOUGHTS
     Dosage: AT NIGHT
  10. QUETIAPINE. [Concomitant]
     Active Substance: QUETIAPINE
     Indication: INTENTIONAL SELF-INJURY
  11. CLOZAPINE. [Suspect]
     Active Substance: CLOZAPINE
     Indication: INTENTIONAL SELF-INJURY
  12. BUSPIRONE [Concomitant]
     Active Substance: BUSPIRONE HYDROCHLORIDE
     Indication: ANXIETY

REACTIONS (1)
  - Periorbital oedema [Recovered/Resolved]
